FAERS Safety Report 24152884 (Version 1)
Quarter: 2024Q3

REPORT INFORMATION
  Report Type: Report from Study
  Country: US (occurrence: US)
  Receive Date: 20240730
  Receipt Date: 20240730
  Transmission Date: 20241016
  Serious: No
  Sender: BIOVITRUM
  Company Number: US-BIOVITRUM-2024-US-010308

PATIENT
  Age: 7 Year
  Sex: Female

DRUGS (1)
  1. KINERET [Suspect]
     Active Substance: ANAKINRA
     Indication: Cryopyrin associated periodic syndrome
     Dosage: DAILY
     Route: 058
     Dates: start: 20210204

REACTIONS (5)
  - Rash [Unknown]
  - Pharyngeal swelling [Unknown]
  - Oropharyngeal pain [Unknown]
  - Febrile convulsion [Unknown]
  - Urinary tract infection [Unknown]
